FAERS Safety Report 4717247-7 (Version None)
Quarter: 2005Q3

REPORT INFORMATION
  Report Type: 
  Country: None (occurrence: None)
  Receive Date: 20050719
  Receipt Date: 20050608
  Transmission Date: 20060218
  Serious: Yes (Death, Life-Threatening, Hospitalization)
  Sender: FDA-Public Use
  Company Number: US-BRISTOL-MYERS SQUIBB COMPANY-12997128

PATIENT
  Age: 60 Year
  Sex: Male
  Weight: 82 kg

DRUGS (3)
  1. ABILIFY [Suspect]
     Indication: SCHIZOPHRENIA, PARANOID TYPE
     Route: 048
     Dates: start: 20050503, end: 20050524
  2. LOVENOX [Concomitant]
  3. STELAZINE [Concomitant]

REACTIONS (3)
  - DISSEMINATED INTRAVASCULAR COAGULATION [None]
  - INSOMNIA [None]
  - NEUROLEPTIC MALIGNANT SYNDROME [None]
